FAERS Safety Report 5107022-6 (Version None)
Quarter: 2006Q3

REPORT INFORMATION
  Report Type: 
  Country: None (occurrence: None)
  Receive Date: 20060913
  Receipt Date: 20060831
  Transmission Date: 20061208
  Serious: Yes (Other)
  Sender: FDA-Public Use
  Company Number: DE-2006-025855

PATIENT
  Age: 70 Year
  Sex: Female

DRUGS (3)
  1. SOTALOL HYDROCHLORIDE [Suspect]
     Dosage: 80 MG, 1X/DAY, ORAL
     Route: 048
     Dates: start: 19970101
  2. LEVOTHYROXINE SODIUM [Concomitant]
  3. METOHEXAL [Concomitant]

REACTIONS (3)
  - BREAST DISCOMFORT [None]
  - BREAST ENLARGEMENT [None]
  - THYROID DISORDER [None]
